FAERS Safety Report 8130894-8 (Version None)
Quarter: 2012Q1

REPORT INFORMATION
  Report Type: 
  Country: None (occurrence: None)
  Receive Date: 20120213
  Receipt Date: 20120210
  Transmission Date: 20120608
  Serious: No
  Sender: FDA-Public Use
  Company Number: US-PFIZER INC-2012037301

PATIENT
  Sex: Female
  Weight: 49.433 kg

DRUGS (5)
  1. CHANTIX [Suspect]
     Indication: SMOKING CESSATION THERAPY
     Dosage: UNK
     Route: 048
  2. CHANTIX [Suspect]
     Dosage: UNK
     Dates: start: 20090101
  3. SPIRIVA [Concomitant]
     Indication: CHRONIC OBSTRUCTIVE PULMONARY DISEASE
  4. CHANTIX [Suspect]
     Dosage: 0.5 MG, DAILY
     Dates: start: 20120202
  5. SPIRIVA [Concomitant]
     Indication: ASTHMA
     Dosage: UNK, DAILY

REACTIONS (4)
  - AGITATION [None]
  - INSOMNIA [None]
  - NERVOUSNESS [None]
  - ABNORMAL DREAMS [None]
